FAERS Safety Report 24104165 (Version 1)
Quarter: 2024Q3

REPORT INFORMATION
  Report Type: Spontaneous
  Country: US (occurrence: None)
  Receive Date: 20240716
  Receipt Date: 20240716
  Transmission Date: 20241017
  Serious: Yes (Other)
  Sender: Public
  Company Number: None

PATIENT
  Age: 70 Year
  Sex: Female
  Weight: 54.5 kg

DRUGS (2)
  1. MYCOPHENOLIC ACID [Suspect]
     Active Substance: MYCOPHENOLIC ACID
     Indication: Renal transplant
     Dosage: FREQUENCY : TWICE A DAY;?
     Route: 048
  2. EVEROLIMUS [Suspect]
     Active Substance: EVEROLIMUS

REACTIONS (4)
  - Stomatitis [None]
  - Hypophagia [None]
  - Weight decreased [None]
  - Immunosuppression [None]

NARRATIVE: CASE EVENT DATE: 20240701
